FAERS Safety Report 18768388 (Version 1)
Quarter: 2021Q1

REPORT INFORMATION
  Report Type: Spontaneous
  Country: DE (occurrence: DE)
  Receive Date: 20210121
  Receipt Date: 20210121
  Transmission Date: 20210419
  Serious: Yes (Other)
  Sender: FDA-Public Use
  Company Number: DE-ASTRAZENECA-2021A005844

PATIENT
  Sex: Male
  Weight: 103 kg

DRUGS (9)
  1. JANUMET [Concomitant]
     Active Substance: METFORMIN HYDROCHLORIDE\SITAGLIPTIN PHOSPHATE
     Dosage: 50/1000 1?0?1
  2. SEMAGLUTIDE [Concomitant]
     Active Substance: SEMAGLUTIDE
  3. INSUMAN RAPID [Concomitant]
     Active Substance: INSULIN HUMAN
     Dosage: 22?28?26 IU WITH MEALS, IN THE TARGET RANGE 80?100 MG/DL, PER 50 MG/DL BLOOD SUGAR (BS) PLUS 2 IU.
  4. DAPAGLIFLOZIN. [Suspect]
     Active Substance: DAPAGLIFLOZIN
     Indication: TYPE 2 DIABETES MELLITUS
     Dosage: 10.0MG UNKNOWN
     Route: 048
  5. HUMINSULIN BASAL [Concomitant]
     Active Substance: INSULIN HUMAN
     Dosage: AT 10.00 PM 10 IU
  6. INSUMAN RAPID [Concomitant]
     Active Substance: INSULIN HUMAN
     Dosage: 18?18?18 I.E
  7. SEMAGLUTIDE [Concomitant]
     Active Substance: SEMAGLUTIDE
     Dosage: 0.25 ? INCREASE OVER THE COURSE
  8. METFORMIN [Concomitant]
     Active Substance: METFORMIN HYDROCHLORIDE
  9. SITAGLIPTIN [Concomitant]
     Active Substance: SITAGLIPTIN

REACTIONS (4)
  - Weight decreased [Unknown]
  - Arthralgia [Unknown]
  - Peripheral arterial occlusive disease [Unknown]
  - Weight increased [Unknown]
